FAERS Safety Report 10037497 (Version 1)
Quarter: 2014Q1

REPORT INFORMATION
  Report Type: Spontaneous
  Country: RU (occurrence: RU)
  Receive Date: 20140326
  Receipt Date: 20140326
  Transmission Date: 20141002
  Serious: Yes (Death)
  Sender: FDA-Public Use
  Company Number: RU-US-EMD SERONO, INC.-7276018

PATIENT
  Sex: 0

DRUGS (4)
  1. GONAL-F [Suspect]
     Indication: OVULATION INDUCTION
     Route: 064
  2. OVITRELLE [Suspect]
     Indication: OVULATION INDUCTION
     Route: 064
  3. CETROTIDE (CETRORELIX ACETATE FOR INJECTION) [Suspect]
     Indication: OVULATION INDUCTION
     Route: 064
  4. CRINONE [Suspect]
     Indication: OVULATION INDUCTION
     Route: 064

REACTIONS (1)
  - Premature baby [Fatal]
